FAERS Safety Report 5000694-6 (Version None)
Quarter: 2006Q2

REPORT INFORMATION
  Report Type: 
  Country: None (occurrence: None)
  Receive Date: 20060512
  Receipt Date: 20060306
  Transmission Date: 20061013
  Serious: Yes (Other)
  Sender: FDA-Public Use
  Company Number: US-AVENTIS-200612111US

PATIENT
  Age: 66 Year
  Sex: Male

DRUGS (5)
  1. KETEK [Suspect]
     Indication: SINUSITIS
     Dates: start: 20051101, end: 20051116
  2. ADVIL [Concomitant]
     Dosage: DOSE: UNKNOWN
  3. SINGULAIR [Concomitant]
     Route: 048
     Dates: start: 20050901
  4. RHINOCORT [Concomitant]
     Dosage: DOSE: 1 SPRAY/NOSTRIL
     Route: 045
     Dates: start: 20050901
  5. PREDNISONE TAB [Concomitant]
     Dosage: DOSE: TAPER
     Route: 048
     Dates: start: 20051102, end: 20051114

REACTIONS (5)
  - ACTIVATED PARTIAL THROMBOPLASTIN TIME PROLONGED [None]
  - ALANINE AMINOTRANSFERASE INCREASED [None]
  - ASPARTATE AMINOTRANSFERASE INCREASED [None]
  - HEPATIC CYST [None]
  - HEPATIC LESION [None]
